FAERS Safety Report 9218302 (Version 1)
Quarter: 2013Q2

REPORT INFORMATION
  Report Type: Spontaneous
  Country: NL (occurrence: NL)
  Receive Date: 20130409
  Receipt Date: 20130409
  Transmission Date: 20140414
  Serious: Yes (Other)
  Sender: FDA-Public Use
  Company Number: NL-009507513-1304NLD002998

PATIENT
  Age: 76 Year
  Sex: Female

DRUGS (3)
  1. FOSAMAX [Suspect]
     Dosage: UNK UNK, QW
     Route: 048
     Dates: start: 201202
  2. FOSAMAX [Suspect]
     Dosage: UNK
     Dates: start: 2003, end: 2008
  3. SEPTANEST [Suspect]
     Indication: SEDATION
     Dosage: UNK
     Dates: start: 201303, end: 201303

REACTIONS (5)
  - Loss of consciousness [Recovered/Resolved]
  - Jaw disorder [Recovered/Resolved]
  - Visual acuity reduced [Not Recovered/Not Resolved]
  - Dizziness [Not Recovered/Not Resolved]
  - Dizziness [Not Recovered/Not Resolved]
